FAERS Safety Report 17656789 (Version 1)
Quarter: 2020Q2

REPORT INFORMATION
  Report Type: Spontaneous
  Country: US (occurrence: US)
  Receive Date: 20200410
  Receipt Date: 20200410
  Transmission Date: 20200713
  Serious: No
  Sender: FDA-Public Use
  Company Number: US-PERRIGO-18US016121

PATIENT
  Age: 68 Year
  Sex: Female
  Weight: 74.83 kg

DRUGS (3)
  1. SALINE                             /00075401/ [Concomitant]
     Active Substance: SODIUM CHLORIDE
     Indication: NASAL CONGESTION
     Dosage: UNKNOWN, QD
     Route: 045
  2. PSEUDOEPHEDRINE HYDROCHLORIDE. [Suspect]
     Active Substance: PSEUDOEPHEDRINE HYDROCHLORIDE
     Indication: PARANASAL SINUS DISCOMFORT
     Dosage: 120 MG, EVERY 12 HOURS
     Route: 048
     Dates: start: 20180402
  3. PSEUDOEPHEDRINE HYDROCHLORIDE. [Suspect]
     Active Substance: PSEUDOEPHEDRINE HYDROCHLORIDE
     Indication: NASAL CONGESTION

REACTIONS (2)
  - Drug ineffective [Unknown]
  - Condition aggravated [Unknown]

NARRATIVE: CASE EVENT DATE: 20180402
